FAERS Safety Report 9261655 (Version 1)
Quarter: 2013Q2

REPORT INFORMATION
  Report Type: Spontaneous
  Country: US (occurrence: US)
  Receive Date: 20130429
  Receipt Date: 20130429
  Transmission Date: 20140414
  Serious: Yes (Congenital Anomaly, Other)
  Sender: FDA-Public Use
  Company Number: US-PFIZER INC-2013129943

PATIENT
  Sex: Male

DRUGS (1)
  1. ZOLOFT [Suspect]
     Dosage: UNK
     Route: 064
     Dates: start: 2000

REACTIONS (7)
  - Foetal exposure during pregnancy [Unknown]
  - Pulmonary artery stenosis congenital [Unknown]
  - Uveitis [Unknown]
  - Sarcoidosis [Unknown]
  - Hypotonia [Unknown]
  - Pain in extremity [Unknown]
  - Failure to thrive [Unknown]
